FAERS Safety Report 4448391-X (Version None)
Quarter: 2004Q3

REPORT INFORMATION
  Report Type: 
  Country: None (occurrence: None)
  Receive Date: 20040730
  Receipt Date: 20031107
  Transmission Date: 20050211
  Serious: Yes (Hospitalization)
  Sender: FDA-Public Use
  Company Number: 2003-04-2759

PATIENT
  Age: 54 Year
  Sex: Female

DRUGS (1)
  1. INTRON A [Suspect]
     Indication: MALIGNANT MELANOMA
     Dosage: IV-SC
     Route: 042
     Dates: start: 20030301, end: 20031030

REACTIONS (2)
  - DEPRESSION [None]
  - FATIGUE [None]
